FAERS Safety Report 8886272 (Version 2)
Quarter: 2013Q4

REPORT INFORMATION
  Report Type: Spontaneous
  Country: US (occurrence: US)
  Receive Date: 20121105
  Receipt Date: 20131118
  Transmission Date: 20140711
  Serious: Yes (Other)
  Sender: FDA-Public Use
  Company Number: US-BAYER-2012-115067

PATIENT
  Age: 61 Year
  Sex: Female
  Weight: 61.22 kg

DRUGS (7)
  1. ALEVE CAPLET/TABLET,MIDOL EXTENDED RELIEF CAPLET [Suspect]
     Indication: ARTHRALGIA
     Dosage: 1 DF, PRN
     Route: 048
     Dates: start: 20121028
  2. ALEVE CAPLET/TABLET,MIDOL EXTENDED RELIEF CAPLET [Suspect]
     Indication: ARTHRALGIA
     Dosage: UNK, PRN
  3. LEXAPRO [Concomitant]
  4. SPIRIVA HANDIHALER [Concomitant]
     Indication: CHRONIC OBSTRUCTIVE PULMONARY DISEASE
     Dosage: 18 ?G, QD
     Dates: start: 2012
  5. FLECTOR [Concomitant]
     Indication: NECK PAIN
     Dosage: UNK
     Dates: start: 2010
  6. OLOPATADINE HYDROCHLORIDE [Concomitant]
     Indication: MULTIPLE ALLERGIES
     Dosage: UNK UNK, PRN
     Dates: start: 2008
  7. NASONEX [Concomitant]
     Dosage: 50 ?G, UNK

REACTIONS (2)
  - Haemoptysis [Recovered/Resolved]
  - Haemoptysis [None]
